FAERS Safety Report 5059251-8 (Version None)
Quarter: 2006Q3

REPORT INFORMATION
  Report Type: 
  Country: None (occurrence: None)
  Receive Date: 20060718
  Receipt Date: 20060703
  Transmission Date: 20061208
  Serious: Yes (Life-Threatening, Disabling)
  Sender: FDA-Public Use
  Company Number: 2006-02691

PATIENT
  Age: 68 Year
  Sex: Female
  Weight: 67 kg

DRUGS (6)
  1. KENTERA (WATSON LABORATORIES) (OXYBUTYNIN)TRANSDERMAL PATCH, 3.9MG [Suspect]
     Indication: URGE INCONTINENCE
     Dosage: 1 PATCH, 2/WEEK, TRANSDERMAL
     Route: 062
     Dates: start: 20060428
  2. AMARYL [Suspect]
     Dosage: 2 MG, DAILY, ORAL
     Route: 048
     Dates: start: 20020101, end: 20060527
  3. MELOXICAM [Concomitant]
  4. ENALAPRIL MALEATE [Concomitant]
  5. ALENDRONAT [Concomitant]
  6. NITROXOLIN [Concomitant]

REACTIONS (1)
  - HYPOGLYCAEMIC COMA [None]
